FAERS Safety Report 7391743-9 (Version None)
Quarter: 2011Q2

REPORT INFORMATION
  Report Type: 
  Country: None (occurrence: None)
  Receive Date: 20110404
  Receipt Date: 20110329
  Transmission Date: 20111010
  Serious: Yes (Other)
  Sender: FDA-Public Use
  Company Number: CY-PFIZER INC-2011069385

PATIENT
  Age: 40 Year
  Sex: Male

DRUGS (1)
  1. ZITHROMAX [Suspect]
     Indication: SEXUALLY TRANSMITTED DISEASE
     Dosage: 1 G, SINGLE
     Route: 048

REACTIONS (1)
  - HAEMATURIA [None]
